FAERS Safety Report 5965084-8 (Version None)
Quarter: 2008Q4

REPORT INFORMATION
  Report Type: 
  Country: None (occurrence: None)
  Receive Date: 20081121
  Receipt Date: 20081110
  Transmission Date: 20090506
  Serious: Yes (Hospitalization)
  Sender: FDA-Public Use
  Company Number: 2008US002893

PATIENT
  Age: 72 Year
  Sex: Female

DRUGS (4)
  1. ADENOSCAN [Suspect]
     Indication: SCAN MYOCARDIAL PERFUSION
     Dosage: IV NOS
     Route: 042
     Dates: start: 20081023, end: 20081023
  2. VERAPAMIL [Concomitant]
  3. TRIAMTERENE AND HYDROCHLOROTHIAZIDE [Concomitant]
  4. NITROGLYCERIN [Concomitant]

REACTIONS (4)
  - HYPERTENSION [None]
  - PRODUCT CONTAMINATION [None]
  - SEPSIS SYNDROME [None]
  - TOXIC SHOCK SYNDROME STAPHYLOCOCCAL [None]
